FAERS Safety Report 23286466 (Version 3)
Quarter: 2025Q3

REPORT INFORMATION
  Report Type: Report from Study
  Country: US (occurrence: US)
  Receive Date: 20231212
  Receipt Date: 20250810
  Transmission Date: 20251020
  Serious: No
  Sender: ALEXION PHARMACEUTICALS
  Company Number: US-AstraZeneca-CH-00524407A

PATIENT
  Sex: Male

DRUGS (1)
  1. SOLIRIS [Suspect]
     Active Substance: ECULIZUMAB
     Indication: Myasthenia gravis

REACTIONS (10)
  - Drug ineffective [Unknown]
  - Depression [Unknown]
  - Insomnia [Unknown]
  - Neck pain [Unknown]
  - Pain [Unknown]
  - Visual impairment [Unknown]
  - Asthenia [Unknown]
  - Anxiety [Unknown]
  - Muscular weakness [Unknown]
  - Abnormal dreams [Not Recovered/Not Resolved]
